FAERS Safety Report 20606952 (Version 3)
Quarter: 2022Q3

REPORT INFORMATION
  Report Type: Spontaneous
  Country: FR (occurrence: FR)
  Receive Date: 20220317
  Receipt Date: 20220919
  Transmission Date: 20221027
  Serious: No
  Sender: FDA-Public Use
  Company Number: FR-PFIZER INC-202200409951

PATIENT
  Age: 61 Year
  Sex: Male
  Weight: 58 kg

DRUGS (1)
  1. PAXLOVID [Suspect]
     Active Substance: NIRMATRELVIR\RITONAVIR
     Indication: COVID-19 treatment
     Dosage: 3 DF (2 DF NIRMATRELVIR + 1 DF RITONAVIR)
     Dates: start: 20220212

REACTIONS (1)
  - Incorrect product administration duration [Unknown]
